FAERS Safety Report 17683753 (Version 2)
Quarter: 2020Q2

REPORT INFORMATION
  Report Type: Report from Study
  Country: JP (occurrence: JP)
  Receive Date: 20200420
  Receipt Date: 20200502
  Transmission Date: 20200714
  Serious: Yes (Hospitalization)
  Sender: FDA-Public Use
  Company Number: JP-ROCHE-2584762

PATIENT
  Age: 8 Decade
  Sex: Male

DRUGS (1)
  1. ACTEMRA [Suspect]
     Active Substance: TOCILIZUMAB
     Indication: RHEUMATOID ARTHRITIS
     Dosage: DOSAGE IS UNCERTAIN.
     Route: 041

REACTIONS (6)
  - Purpura [Unknown]
  - Eczema [Unknown]
  - Lymphadenopathy [Unknown]
  - Chapped lips [Recovering/Resolving]
  - Herpes zoster [Unknown]
  - Malaise [Unknown]
